FAERS Safety Report 4890942-5 (Version None)
Quarter: 2006Q1

REPORT INFORMATION
  Report Type: 
  Country: None (occurrence: None)
  Receive Date: 20060123
  Receipt Date: 20060114
  Transmission Date: 20060701
  Serious: Yes (Hospitalization)
  Sender: FDA-Public Use
  Company Number: SU-2005-004401

PATIENT
  Age: 67 Year
  Sex: Male
  Weight: 68.0396 kg

DRUGS (9)
  1. WELCHOL [Suspect]
     Indication: DYSLIPIDAEMIA
     Dosage: 1875 MG BID PO
     Route: 048
     Dates: start: 20040613
  2. ZETIA [Suspect]
     Dosage: MG, PO
     Route: 048
  3. DIOVAN [Concomitant]
  4. HYDROCHLOROTHIAZIDE [Concomitant]
  5. ASPIRIN [Concomitant]
  6. TAR SHAMPOO [Concomitant]
  7. PERCOCET [Concomitant]
  8. SONATA [Concomitant]
  9. VIAGRA [Concomitant]

REACTIONS (10)
  - ALOPECIA EFFLUVIUM [None]
  - BURNING SENSATION [None]
  - EAR PRURITUS [None]
  - EYE INFECTION [None]
  - GASTROINTESTINAL DISORDER [None]
  - INSOMNIA [None]
  - MADAROSIS [None]
  - RESPIRATORY TRACT IRRITATION [None]
  - SKIN EXFOLIATION [None]
  - STRESS [None]
